FAERS Safety Report 12388879 (Version 1)
Quarter: 2016Q2

REPORT INFORMATION
  Report Type: Spontaneous
  Country: US (occurrence: US)
  Receive Date: 20160520
  Receipt Date: 20160520
  Transmission Date: 20160815
  Serious: No
  Sender: FDA-Public Use
  Company Number: US-WATSON-2015-18009

PATIENT
  Age: 30 Year
  Sex: Male

DRUGS (1)
  1. PROPRANOLOL [Suspect]
     Active Substance: PROPRANOLOL\PROPRANOLOL HYDROCHLORIDE
     Indication: ANXIETY
     Dosage: 10 MG, PRN (2-3 TIMES PER WEEK)
     Route: 048
     Dates: start: 20150612, end: 20150713

REACTIONS (11)
  - Gait disturbance [Recovering/Resolving]
  - Pyrexia [Not Recovered/Not Resolved]
  - Asthenia [Recovering/Resolving]
  - Cough [Not Recovered/Not Resolved]
  - Abnormal dreams [Recovered/Resolved]
  - Myalgia [Recovering/Resolving]
  - Bronchospasm [Not Recovered/Not Resolved]
  - Hyperhidrosis [Not Recovered/Not Resolved]
  - Insomnia [Not Recovered/Not Resolved]
  - Intentional product misuse [Recovered/Resolved]
  - Fatigue [Recovering/Resolving]

NARRATIVE: CASE EVENT DATE: 201506
